FAERS Safety Report 23073828 (Version 2)
Quarter: 2023Q4

REPORT INFORMATION
  Report Type: Spontaneous
  Country: US (occurrence: US)
  Receive Date: 20231017
  Receipt Date: 20231025
  Transmission Date: 20240110
  Serious: Yes (Life-Threatening, Hospitalization, Other)
  Sender: FDA-Public Use
  Company Number: US-CIPLA LTD.-2023US06330

PATIENT

DRUGS (1)
  1. LISINOPRIL [Suspect]
     Active Substance: LISINOPRIL
     Indication: Hypertension
     Dosage: UNK, FOR MANY YEARS
     Route: 065

REACTIONS (3)
  - Respiratory distress [Recovering/Resolving]
  - Angioedema [Recovered/Resolved]
  - Intestinal angioedema [Recovering/Resolving]
